FAERS Safety Report 14998112 (Version 1)
Quarter: 2018Q2

REPORT INFORMATION
  Report Type: Spontaneous
  Country: US (occurrence: US)
  Receive Date: 20180520
  Receipt Date: 20180520
  Transmission Date: 20180711
  Serious: Yes (Other)
  Sender: FDA-Public Use
  Company Number: None

PATIENT
  Age: 31 Year
  Sex: Female
  Weight: 63.5 kg

DRUGS (1)
  1. MIRENA [Suspect]
     Active Substance: LEVONORGESTREL
     Dates: start: 20150622, end: 20151112

REACTIONS (3)
  - Haemorrhage [None]
  - Uterine perforation [None]
  - Abdominal pain upper [None]

NARRATIVE: CASE EVENT DATE: 20151112
